FAERS Safety Report 6817498-1 (Version None)
Quarter: 2010Q3

REPORT INFORMATION
  Report Type: 
  Country: None (occurrence: None)
  Receive Date: 20100706
  Receipt Date: 20100629
  Transmission Date: 20110219
  Serious: Yes (Other)
  Sender: FDA-Public Use
  Company Number: B0660802A

PATIENT
  Sex: Male

DRUGS (1)
  1. SERETIDE ACCUHALER [Suspect]
     Indication: ASTHMA
     Route: 055

REACTIONS (2)
  - ASTHMA [None]
  - PRODUCT QUALITY ISSUE [None]
